FAERS Safety Report 6200990-0 (Version None)
Quarter: 2009Q2

REPORT INFORMATION
  Report Type: 
  Country: None (occurrence: None)
  Receive Date: 20090525
  Receipt Date: 20090511
  Transmission Date: 20091009
  Serious: Yes (Hospitalization, Other)
  Sender: FDA-Public Use
  Company Number: FR-ROCHE-632449

PATIENT
  Age: 47 Year
  Sex: Male

DRUGS (3)
  1. PEGASYS [Suspect]
     Indication: HEPATITIS C
     Route: 058
     Dates: start: 20081211
  2. FUZEON [Concomitant]
  3. TRUVADA [Concomitant]

REACTIONS (4)
  - FALL [None]
  - FOREARM FRACTURE [None]
  - FRACTURE DISPLACEMENT [None]
  - IMPAIRED HEALING [None]
